FAERS Safety Report 4626639-6 (Version None)
Quarter: 2005Q1

REPORT INFORMATION
  Report Type: 
  Country: None (occurrence: None)
  Receive Date: 20050330
  Receipt Date: 20050316
  Transmission Date: 20050727
  Serious: No
  Sender: FDA-Public Use
  Company Number: US010981

PATIENT
  Age: 19 Month
  Sex: Male
  Weight: 13.1543 kg

DRUGS (1)
  1. ACTIQ [Suspect]
     Dosage: 600 UG ONCE BUCCAL
     Route: 002
     Dates: start: 20030512, end: 20030512

REACTIONS (5)
  - ACCIDENTAL EXPOSURE [None]
  - MYDRIASIS [None]
  - SCRATCH [None]
  - SOMNOLENCE [None]
  - YAWNING [None]
